FAERS Safety Report 5464151-5 (Version None)
Quarter: 2007Q3

REPORT INFORMATION
  Report Type: 
  Country: None (occurrence: None)
  Receive Date: 20070921
  Receipt Date: 20070917
  Transmission Date: 20080115
  Serious: Yes (Other)
  Sender: FDA-Public Use
  Company Number: DE-BOEHRINGER INGELHEIM PHARMACEUTICALS, INC.-2007-DE-05545DE

PATIENT
  Sex: Male

DRUGS (5)
  1. ALNA OCAS [Suspect]
     Route: 048
  2. ASS 300 [Suspect]
     Route: 048
  3. GRANUFINK PROSTA [Suspect]
     Route: 048
  4. LISIHEXAL COMP [Suspect]
     Route: 048
  5. PANTOZOL 40 [Suspect]
     Route: 048

REACTIONS (1)
  - MEDICATION ERROR [None]
